FAERS Safety Report 7499164-5 (Version None)
Quarter: 2011Q2

REPORT INFORMATION
  Report Type: 
  Country: None (occurrence: None)
  Receive Date: 20110524
  Receipt Date: 20110519
  Transmission Date: 20111010
  Serious: Yes (Hospitalization)
  Sender: FDA-Public Use
  Company Number: FR-SANOFI-AVENTIS-2011SA031328

PATIENT
  Age: 78 Year
  Sex: Male

DRUGS (9)
  1. TRAVATAN [Concomitant]
  2. POTASSIUM CHLORIDE [Suspect]
     Route: 048
  3. LASIX [Suspect]
     Route: 048
  4. CORDARONE [Suspect]
     Route: 048
  5. AVODART [Suspect]
     Route: 048
  6. RAMIPRIL [Suspect]
     Route: 048
  7. NOOTROPYL [Suspect]
     Route: 048
     Dates: end: 20110324
  8. TRIMETAZIDINE HYDROCHLORIDE [Suspect]
     Route: 048
     Dates: end: 20110406
  9. ESOMEPRAZOLE MAGNESIUM [Suspect]
     Route: 048
     Dates: end: 20110406

REACTIONS (3)
  - HALLUCINATION, VISUAL [None]
  - AGGRESSION [None]
  - HYPOTHYROIDISM [None]
